FAERS Safety Report 21633314 (Version 1)
Quarter: 2022Q4

REPORT INFORMATION
  Report Type: Spontaneous
  Country: US (occurrence: None)
  Receive Date: 20221122
  Receipt Date: 20221122
  Transmission Date: 20230112
  Serious: Yes (Other)
  Sender: FDA-Public Use
  Company Number: None

PATIENT
  Age: 51 Year
  Sex: Male
  Weight: 72 kg

DRUGS (7)
  1. GADOLINIUM [Suspect]
     Active Substance: GADOLINIUM
     Indication: Scan with contrast
     Route: 042
  2. CRESTOR [Concomitant]
  3. VITAMINS [Concomitant]
     Active Substance: VITAMINS
  4. SODIUM CHLORIDE [Concomitant]
     Active Substance: SODIUM CHLORIDE
  5. BIOTIN [Concomitant]
     Active Substance: BIOTIN
  6. VITAMIN D [Concomitant]
     Active Substance: VITAMIN D NOS
  7. Claratin [Concomitant]

REACTIONS (8)
  - Chills [None]
  - Headache [None]
  - Arthralgia [None]
  - Fatigue [None]
  - Dizziness [None]
  - Pyrexia [None]
  - Rash [None]
  - Peripheral swelling [None]

NARRATIVE: CASE EVENT DATE: 20221121
